FAERS Safety Report 14421614 (Version 1)
Quarter: 2018Q1

REPORT INFORMATION
  Report Type: Spontaneous
  Country: US (occurrence: US)
  Receive Date: 20180122
  Receipt Date: 20180122
  Transmission Date: 20180509
  Serious: No
  Sender: FDA-Public Use
  Company Number: US-INTERCEPT-PMOCA2017001191

PATIENT

DRUGS (2)
  1. OCALIVA [Suspect]
     Active Substance: OBETICHOLIC ACID
     Indication: PRIMARY BILIARY CHOLANGITIS
  2. OCALIVA [Suspect]
     Active Substance: OBETICHOLIC ACID
     Indication: HEPATIC CIRRHOSIS
     Dosage: 5 MG, QD
     Route: 048
     Dates: start: 201608, end: 201710

REACTIONS (6)
  - Dizziness [Unknown]
  - Tremor [Recovered/Resolved]
  - Loss of personal independence in daily activities [Recovered/Resolved]
  - Nausea [Unknown]
  - Fatigue [Recovered/Resolved]
  - Pruritus [Recovered/Resolved]

NARRATIVE: CASE EVENT DATE: 201709
